FAERS Safety Report 19008011 (Version 2)
Quarter: 2021Q2

REPORT INFORMATION
  Report Type: Spontaneous
  Country: BE (occurrence: BE)
  Receive Date: 20210315
  Receipt Date: 20210504
  Transmission Date: 20210717
  Serious: Yes (Death, Hospitalization, Other)
  Sender: FDA-Public Use
  Company Number: BE-AUROBINDO-AUR-APL-2021-009881

PATIENT
  Age: 24 Year
  Sex: Male

DRUGS (8)
  1. MIDAZOLAM. [Suspect]
     Active Substance: MIDAZOLAM
     Indication: PRODUCT USED FOR UNKNOWN INDICATION
     Dosage: 20 DOSAGE FORM
     Route: 065
  2. MIDAZOLAM. [Suspect]
     Active Substance: MIDAZOLAM
     Dosage: 150 MILLIGRAM
     Route: 048
  3. DOMPERIDONE [Suspect]
     Active Substance: DOMPERIDONE
     Indication: PRODUCT USED FOR UNKNOWN INDICATION
     Dosage: 50 MILLIGRAM
     Route: 048
  4. ONDANSETRON FILM COATED TABLETS 4 MG [Suspect]
     Active Substance: ONDANSETRON
     Indication: PRODUCT USED FOR UNKNOWN INDICATION
     Dosage: 40 MILLIGRAM
     Route: 048
  5. CHLOROQUINE. [Suspect]
     Active Substance: CHLOROQUINE
     Dosage: 58 DOSAGE FORM, 1 TOTAL (58 DF, ONCE/SINGLE)
     Route: 065
  6. DOMPERIDONE [Suspect]
     Active Substance: DOMPERIDONE
     Dosage: 5 DOSAGE FORM, 1 TOTAL (5 DF, ONCE/SINGLE)
     Route: 065
  7. ONDANSETRON FILM COATED TABLETS 4 MG [Suspect]
     Active Substance: ONDANSETRON
     Dosage: 10 DOSAGE FORM, 1 TOTAL (10 DF, ONCE/SINGLE)
     Route: 065
  8. CHLOROQUINE. [Suspect]
     Active Substance: CHLOROQUINE
     Indication: PRODUCT USED FOR UNKNOWN INDICATION
     Dosage: 14500 MILLIGRAM
     Route: 048

REACTIONS (8)
  - Brain death [Fatal]
  - Pulseless electrical activity [Unknown]
  - Intentional overdose [Fatal]
  - Ventricular fibrillation [Unknown]
  - Pulse absent [Unknown]
  - Ventricular tachycardia [Unknown]
  - Loss of consciousness [Unknown]
  - Nodal rhythm [Unknown]
